FAERS Safety Report 23883881 (Version 2)
Quarter: 2024Q2

REPORT INFORMATION
  Report Type: Spontaneous
  Country: US (occurrence: None)
  Receive Date: 20240522
  Receipt Date: 20240625
  Transmission Date: 20240715
  Serious: No
  Sender: FDA-Public Use
  Company Number: 2024A107333

PATIENT
  Age: 20260 Day
  Sex: Female

DRUGS (1)
  1. BREZTRI [Suspect]
     Active Substance: BUDESONIDE\FORMOTEROL\GLYCOPYRROLATE
     Dosage: 160/9/4.8 UG, UNKNOWN FREQUENCY
     Route: 055

REACTIONS (5)
  - Candida infection [Unknown]
  - Taste disorder [Unknown]
  - Dysphonia [Unknown]
  - Device malfunction [Unknown]
  - Product prescribing issue [Unknown]

NARRATIVE: CASE EVENT DATE: 20240505
